FAERS Safety Report 21022548 (Version 1)
Quarter: 2022Q2

REPORT INFORMATION
  Report Type: Spontaneous
  Country: FR (occurrence: FR)
  Receive Date: 20220629
  Receipt Date: 20220629
  Transmission Date: 20220721
  Serious: Yes (Hospitalization)
  Sender: FDA-Public Use
  Company Number: None

PATIENT
  Age: 65 Year
  Sex: Female
  Weight: 63 kg

DRUGS (5)
  1. CARBOPLATIN [Suspect]
     Active Substance: CARBOPLATIN
     Indication: Ovarian epithelial cancer
     Dosage: STRENGTH  10 MG/ML
     Dates: start: 20211227, end: 20211227
  2. METHYLPREDNISOLONE [Concomitant]
     Active Substance: METHYLPREDNISOLONE
     Indication: Premedication
     Dosage: STRENGTH 120 MG, POWDER FOR SOLUTION FOR INJECTION (IM-IV)
     Dates: start: 20211227, end: 20211227
  3. EMEND [Concomitant]
     Active Substance: APREPITANT
     Indication: Premedication
     Dosage: STRENGTH 125 MG
     Dates: start: 20211227, end: 20211227
  4. PACLITAXEL [Concomitant]
     Active Substance: PACLITAXEL
     Indication: Ovarian epithelial cancer
     Dosage: STRENGTH 6MG/ML
     Dates: start: 20211227, end: 20211227
  5. DEXCHLORPHENIRAMINE MALEATE [Concomitant]
     Active Substance: DEXCHLORPHENIRAMINE MALEATE
     Indication: Premedication
     Dosage: STRENGTH 5 MG/1 ML
     Dates: start: 20211227, end: 20211227

REACTIONS (1)
  - Infusion related reaction [Recovered/Resolved]

NARRATIVE: CASE EVENT DATE: 20211227
